FAERS Safety Report 6827170-X (Version None)
Quarter: 2010Q3

REPORT INFORMATION
  Report Type: 
  Country: None (occurrence: None)
  Receive Date: 20100709
  Receipt Date: 20100629
  Transmission Date: 20110219
  Serious: Yes (Hospitalization)
  Sender: FDA-Public Use
  Company Number: CA-JNJFOC-20100700574

PATIENT
  Sex: Female
  Weight: 58 kg

DRUGS (5)
  1. REMICADE [Suspect]
     Indication: CROHN'S DISEASE
     Route: 042
  2. LORAZEPAM [Concomitant]
  3. WARFARIN [Concomitant]
  4. VALSARTAN [Concomitant]
  5. CALCIUM CARBONATE [Concomitant]

REACTIONS (10)
  - ALOPECIA [None]
  - ASTHENIA [None]
  - DECREASED APPETITE [None]
  - DEEP VEIN THROMBOSIS [None]
  - GASTROINTESTINAL HAEMORRHAGE [None]
  - HEADACHE [None]
  - OEDEMA PERIPHERAL [None]
  - PAIN IN JAW [None]
  - RASH ERYTHEMATOUS [None]
  - RASH PRURITIC [None]
